FAERS Safety Report 10068387 (Version 1)
Quarter: 2014Q2

REPORT INFORMATION
  Report Type: Spontaneous
  Country: BR (occurrence: BR)
  Receive Date: 20140409
  Receipt Date: 20140409
  Transmission Date: 20141212
  Serious: Yes (Death, Other)
  Sender: FDA-Public Use
  Company Number: BR-ACTAVIS-2014-06545

PATIENT
  Age: 94 Year
  Sex: Female

DRUGS (6)
  1. CIPROFLOXACIN HYDROCHLORIDE (UNKNOWN) [Suspect]
     Indication: KLEBSIELLA INFECTION
     Dosage: UNK
     Route: 065
  2. CEFTRIAXONE (UNKNOWN) [Suspect]
     Indication: KLEBSIELLA INFECTION
     Dosage: 1 G, BID
     Route: 065
  3. CLINDAMYCIN (UNKNOWN) [Suspect]
     Indication: KLEBSIELLA INFECTION
     Dosage: 600 MG, TID
     Route: 065
  4. PIPERACILLIN-TAZOBACTAM (UNKNOWN) [Suspect]
     Indication: KLEBSIELLA INFECTION
     Dosage: UNK
     Route: 065
  5. VANCOMYCIN (UNKNOWN) [Suspect]
     Indication: KLEBSIELLA INFECTION
     Dosage: UNK
     Route: 065
  6. FLUCONAZOLE (UNKNOWN) [Suspect]
     Indication: URINARY TRACT INFECTION FUNGAL
     Dosage: UNK
     Route: 065

REACTIONS (4)
  - Klebsiella infection [Fatal]
  - Urinary tract infection [Fatal]
  - Pathogen resistance [Fatal]
  - Drug ineffective [Fatal]
